FAERS Safety Report 4757362-5 (Version None)
Quarter: 2005Q3

REPORT INFORMATION
  Report Type: 
  Country: None (occurrence: None)
  Receive Date: 20050831
  Receipt Date: 20050823
  Transmission Date: 20060218
  Serious: Yes (Other)
  Sender: FDA-Public Use
  Company Number: US-JNJFOC-20050806062

PATIENT
  Sex: Male
  Weight: 31.75 kg

DRUGS (2)
  1. CONCERTA [Suspect]
     Route: 048
  2. CONCERTA [Suspect]
     Route: 048

REACTIONS (4)
  - DECREASED APPETITE [None]
  - HEADACHE [None]
  - TREMOR [None]
  - WEIGHT GAIN POOR [None]
